FAERS Safety Report 20058013 (Version 1)
Quarter: 2021Q4

REPORT INFORMATION
  Report Type: Spontaneous
  Country: BR (occurrence: BR)
  Receive Date: 20211111
  Receipt Date: 20211111
  Transmission Date: 20220303
  Serious: Yes (Life-Threatening, Other)
  Sender: FDA-Public Use
  Company Number: BR-GILEAD-2021-0554795

PATIENT
  Sex: Female

DRUGS (5)
  1. AMPHOTERICIN B [Suspect]
     Active Substance: AMPHOTERICIN B
     Indication: Mucormycosis
     Dosage: 250 MG, ONCE DAILY (5 MG/KG)
     Route: 065
     Dates: start: 20211015
  2. SODIUM BICARBONATE [Concomitant]
     Active Substance: SODIUM BICARBONATE
     Indication: Product used for unknown indication
     Dosage: UNK UNK, UNKNOWN FREQ.
     Route: 065
  3. NOREPINEPHRINE [Concomitant]
     Active Substance: NOREPINEPHRINE
     Indication: Product used for unknown indication
     Dosage: UNK UNK, UNKNOWN FREQ.
     Route: 065
  4. FENTANYL [Concomitant]
     Active Substance: FENTANYL
     Indication: Product used for unknown indication
     Dosage: UNK UNK, UNKNOWN FREQ.
     Route: 065
  5. MIDAZOLAM [Concomitant]
     Active Substance: MIDAZOLAM
     Indication: Product used for unknown indication
     Dosage: UNK UNK, UNKNOWN FREQ.
     Route: 065

REACTIONS (15)
  - Cardio-respiratory arrest [Recovered/Resolved]
  - Hepatic perfusion disorder [Unknown]
  - Pulmonary artery dilatation [Unknown]
  - Endotracheal intubation [Unknown]
  - Hip arthroplasty [Unknown]
  - Pain [Unknown]
  - Pleural effusion [Unknown]
  - Hypokinesia [Unknown]
  - Breath sounds abnormal [Unknown]
  - Atelectasis [Unknown]
  - Bronchial wall thickening [Unknown]
  - Left ventricular hypertrophy [Unknown]
  - Systolic dysfunction [Unknown]
  - Diastolic dysfunction [Unknown]
  - Chest pain [Unknown]

NARRATIVE: CASE EVENT DATE: 20211027
